APPROVED DRUG PRODUCT: SULFATRIM
Active Ingredient: SULFAMETHOXAZOLE; TRIMETHOPRIM
Strength: 200MG/5ML;40MG/5ML
Dosage Form/Route: SUSPENSION;ORAL
Application: N018615 | Product #002
Applicant: PHARMACEUTICAL ASSOCIATES INC
Approved: Jan 7, 1983 | RLD: No | RS: No | Type: DISCN